FAERS Safety Report 20623809 (Version 1)
Quarter: 2022Q1

REPORT INFORMATION
  Report Type: Spontaneous
  Country: AU (occurrence: AU)
  Receive Date: 20220322
  Receipt Date: 20220322
  Transmission Date: 20220423
  Serious: Yes (Hospitalization, Other)
  Sender: FDA-Public Use
  Company Number: AU-009507513-2203AUS005120

PATIENT
  Age: 7 Year
  Sex: Female

DRUGS (17)
  1. POSACONAZOLE [Suspect]
     Active Substance: POSACONAZOLE
     Indication: Product used for unknown indication
     Dosage: UNK
     Dates: start: 20201007
  2. INTRAGAM P [Suspect]
     Active Substance: HUMAN IMMUNOGLOBULIN G
     Indication: Product used for unknown indication
  3. ORKAMBI [Suspect]
     Active Substance: IVACAFTOR\LUMACAFTOR
     Indication: Cystic fibrosis
     Dosage: 2 DOSE UNSPECIFIED , INTERVAL: 12 HOUR
     Route: 048
     Dates: start: 202001
  4. ORKAMBI [Suspect]
     Active Substance: IVACAFTOR\LUMACAFTOR
     Dosage: 1 DOSE UNSPECIFIED, INTERVAL: 1 DAY
     Route: 048
     Dates: start: 202010
  5. PIPERACILLIN SODIUM\TAZOBACTAM SODIUM [Suspect]
     Active Substance: PIPERACILLIN SODIUM\TAZOBACTAM SODIUM
     Indication: Product used for unknown indication
     Dosage: UNK
     Route: 042
  6. TOBRAMYCIN [Suspect]
     Active Substance: TOBRAMYCIN
     Indication: Product used for unknown indication
     Route: 042
  7. AUGMENTIN [Concomitant]
     Active Substance: AMOXICILLIN\CLAVULANATE POTASSIUM
  8. CLONIDINE [Concomitant]
     Active Substance: CLONIDINE
  9. SODIUM CHLORIDE [Concomitant]
     Active Substance: SODIUM CHLORIDE
     Dosage: UNK, INTERVAL: 12 HOUR
  10. SODIUM CHLORIDE [Concomitant]
     Active Substance: SODIUM CHLORIDE
     Dosage: 600 MILLIGRAM
  11. IRBESARTAN [Concomitant]
     Active Substance: IRBESARTAN
  12. MEPOLIZUMAB [Concomitant]
     Active Substance: MEPOLIZUMAB
     Dosage: UNK
     Dates: start: 20201028
  13. MEROPENEM [Concomitant]
     Active Substance: MEROPENEM
  14. OMEPRAZOLE [Concomitant]
     Active Substance: OMEPRAZOLE
     Dosage: 10 MILLIGRAM, INTERVAL: 1 DAY
  15. PULMOZYME [Concomitant]
     Active Substance: DORNASE ALFA
  16. SERETIDE [Concomitant]
     Active Substance: FLUTICASONE PROPIONATE\SALMETEROL XINAFOATE
     Dosage: 2 DOSE UNSPECIFIED , INTERVAL: 12 HOUR
  17. URSODIOL [Concomitant]
     Active Substance: URSODIOL
     Dosage: 125 MILLIGRAM, INTERVAL: 12 HOUR

REACTIONS (9)
  - Infective pulmonary exacerbation of cystic fibrosis [Unknown]
  - Urticaria [Recovered/Resolved]
  - Blood immunoglobulin G decreased [Unknown]
  - Bronchopulmonary aspergillosis allergic [Not Recovered/Not Resolved]
  - Cystic fibrosis lung [Not Recovered/Not Resolved]
  - Emotional disorder [Not Recovered/Not Resolved]
  - Renal impairment [Recovering/Resolving]
  - Hepatic enzyme increased [Recovering/Resolving]
  - Hypertension [Recovering/Resolving]

NARRATIVE: CASE EVENT DATE: 20200101
